FAERS Safety Report 21418804 (Version 1)
Quarter: 2022Q4

REPORT INFORMATION
  Report Type: Spontaneous
  Country: US (occurrence: None)
  Receive Date: 20221006
  Receipt Date: 20221006
  Transmission Date: 20230112
  Serious: No
  Sender: FDA-Public Use
  Company Number: None

PATIENT

DRUGS (1)
  1. ALUMINUM CHLORIDE [Suspect]
     Active Substance: ALUMINUM CHLORIDE

REACTIONS (3)
  - Device computer issue [None]
  - Product packaging quantity issue [None]
  - Transcription medication error [None]
